FAERS Safety Report 4666764-7 (Version None)
Quarter: 2005Q2

REPORT INFORMATION
  Report Type: 
  Country: None (occurrence: None)
  Receive Date: 20050518
  Receipt Date: 20040909
  Transmission Date: 20051028
  Serious: Yes (Other)
  Sender: FDA-Public Use
  Company Number: 2004202864US

PATIENT
  Age: 24 Year
  Sex: Female
  Weight: 66.2 kg

DRUGS (4)
  1. DEPO-PROVERA [Suspect]
     Indication: CONTRACEPTION
     Dosage: 150MG/3MONTHS, 1ST INJ, INTRAMUSCULAR;  150MG/3MONTHS, LAST INJ, INTRAMUSCULAR
     Route: 030
     Dates: start: 20020618, end: 20020618
  2. DEPO-PROVERA [Suspect]
     Indication: CONTRACEPTION
     Dosage: 150MG/3MONTHS, 1ST INJ, INTRAMUSCULAR;  150MG/3MONTHS, LAST INJ, INTRAMUSCULAR
     Route: 030
     Dates: start: 20031210, end: 20031210
  3. CLOTRIMAZOLE [Concomitant]
  4. PRENATAL (ERGOCALCIFEROL, RETINOL, POTASSIUM IODIDE, MANGANESE CHLORID [Concomitant]

REACTIONS (1)
  - UNINTENDED PREGNANCY [None]
